FAERS Safety Report 15859195 (Version 1)
Quarter: 2018Q4

REPORT INFORMATION
  Report Type: Spontaneous
  Country: US (occurrence: US)
  Receive Date: 20181228
  Receipt Date: 20181228
  Transmission Date: 20190205
  Serious: No
  Sender: FDA-Public Use
  Company Number: None

PATIENT
  Age: 66 Year
  Sex: Female
  Weight: 72.57 kg

DRUGS (3)
  1. MULTI-VIT [Concomitant]
     Active Substance: VITAMINS
  2. CLINDAMYCIN. [Suspect]
     Active Substance: CLINDAMYCIN
     Indication: TOOTH ABSCESS
     Dosage: ?          QUANTITY:150 MG MILLIGRAM(S);OTHER FREQUENCY:2 CAPS,1 CAPS 3XOD;?
     Route: 048
     Dates: start: 20180608, end: 20180617
  3. VITAMIN C [Concomitant]
     Active Substance: ASCORBIC ACID

REACTIONS (8)
  - Diarrhoea [None]
  - Candida infection [None]
  - Clostridium test positive [None]
  - Immune system disorder [None]
  - Nasopharyngitis [None]
  - Oropharyngeal pain [None]
  - Malaise [None]
  - Fungal infection [None]

NARRATIVE: CASE EVENT DATE: 20180611
